FAERS Safety Report 10533061 (Version 3)
Quarter: 2014Q4

REPORT INFORMATION
  Report Type: Report from Study
  Country: US (occurrence: US)
  Receive Date: 20141022
  Receipt Date: 20141106
  Transmission Date: 20150529
  Serious: Yes (Hospitalization)
  Sender: FDA-Public Use
  Company Number: US-BIOGENIDEC-2014BI108488

PATIENT
  Age: 71 Year
  Sex: Male

DRUGS (1)
  1. AVONEX [Suspect]
     Active Substance: INTERFERON BETA-1A
     Indication: MULTIPLE SCLEROSIS
     Route: 030
     Dates: start: 19991105

REACTIONS (2)
  - Multiple sclerosis relapse [Recovered/Resolved]
  - Hip fracture [Recovered/Resolved with Sequelae]

NARRATIVE: CASE EVENT DATE: 2014
